FAERS Safety Report 8709867 (Version 2)
Quarter: 2013Q2

REPORT INFORMATION
  Report Type: Spontaneous
  Country: FR (occurrence: FR)
  Receive Date: 20120806
  Receipt Date: 20130531
  Transmission Date: 20140414
  Serious: Yes (Death, Hospitalization)
  Sender: FDA-Public Use
  Company Number: PHHY2012FR047098

PATIENT
  Age: 45 Year
  Sex: Male

DRUGS (11)
  1. DOXORUBICIN EBEWE [Suspect]
     Indication: LYMPHOMA
     Dosage: 52 MG, ONCE IN EVERY 28 DAYS
     Route: 042
     Dates: start: 20100506, end: 20100901
  2. MABTHERA [Suspect]
     Indication: LYMPHOMA
     Dosage: 1 DF, 1 TIME PER 4 CYCLE
     Route: 042
     Dates: start: 20100506, end: 20100901
  3. MABTHERA [Suspect]
     Dosage: 780 MG, ONCE EVERY 2 MONTHS
     Route: 042
     Dates: start: 20101116, end: 201204
  4. METHYLPREDNISOLONE MYLAN [Suspect]
     Indication: PREMEDICATION
     Dosage: 120 MG, ONCE TIME FOR 4 CYCLE
     Route: 042
     Dates: start: 20080425, end: 20080516
  5. METHYLPREDNISOLONE MYLAN [Suspect]
     Dosage: 120 MG, ONCE IN EVERY 2 MONTHS
     Route: 042
     Dates: start: 20100506, end: 20100901
  6. ENDOXAN [Suspect]
     Indication: LYMPHOMA
     Dosage: 600 MG, 5 TIMES EVERY 28 DAYS
     Route: 048
     Dates: start: 20100506, end: 20100905
  7. VINCRISTINE [Suspect]
     Indication: LYMPHOMA
     Dosage: 2 MG, EVERY 28 DAYS
     Route: 042
     Dates: start: 20100506, end: 20100901
  8. SOLUPRED [Suspect]
     Indication: LYMPHOMA
     Dosage: 100 MG, 4 TIMES EVERY 28 DAYS
     Route: 048
     Dates: start: 20100507, end: 20100905
  9. ANTIHISTAMINES [Concomitant]
  10. POLARAMIN [Concomitant]
  11. PARACETAMOL [Concomitant]

REACTIONS (1)
  - Malignant melanoma [Fatal]
